FAERS Safety Report 13611292 (Version 1)
Quarter: 2017Q2

REPORT INFORMATION
  Report Type: Spontaneous
  Country: PL (occurrence: PL)
  Receive Date: 20170605
  Receipt Date: 20170605
  Transmission Date: 20170830
  Serious: Yes (Other)
  Sender: FDA-Public Use
  Company Number: PL-PFIZER INC-2017240686

PATIENT
  Age: 64 Year
  Sex: Female

DRUGS (7)
  1. BISOCARD [Concomitant]
     Active Substance: BISOPROLOL
     Dosage: 5 MG, 1X/DAY, IN THE MORNING
  2. METFORMAX [Concomitant]
     Active Substance: METFORMIN HYDROCHLORIDE
     Dosage: UNK
  3. ALDAN /00587801/ [Concomitant]
     Dosage: 5 MG, 1X/DAY
  4. POLPRIL [Concomitant]
     Active Substance: RAMIPRIL
     Dosage: 10 MG, 1X/DAY, IN THE EVENING
  5. ATORVASTATIN CALCIUM. [Suspect]
     Active Substance: ATORVASTATIN CALCIUM
     Dosage: UNK
  6. IRON [Concomitant]
     Active Substance: IRON
     Dosage: 1000 MG + 600 MG
  7. DIAPREL [Concomitant]
     Active Substance: GLICLAZIDE
     Dosage: 30 MG, 1X/DAY, IN THE MORNING

REACTIONS (1)
  - Carotid artery occlusion [Unknown]
